FAERS Safety Report 7340685-3 (Version None)
Quarter: 2011Q1

REPORT INFORMATION
  Report Type: 
  Country: None (occurrence: None)
  Receive Date: 20110309
  Receipt Date: 20110301
  Transmission Date: 20110831
  Serious: Yes (Death, Other)
  Sender: FDA-Public Use
  Company Number: JP-ROCHE-762271

PATIENT
  Sex: Male
  Weight: 47 kg

DRUGS (14)
  1. MUCOSTA [Concomitant]
     Route: 048
     Dates: start: 20101009, end: 20101220
  2. CARBOPLATIN [Suspect]
     Route: 041
     Dates: start: 20101202, end: 20101202
  3. GASTER D [Concomitant]
     Route: 048
     Dates: start: 20101009, end: 20101220
  4. LOXOPROFEN SODIUM [Concomitant]
     Route: 048
     Dates: start: 20101009, end: 20101220
  5. PACLITAXEL [Suspect]
     Indication: LUNG ADENOCARCINOMA METASTATIC
     Dosage: DOSAGE IS UNCERTAIN
     Route: 041
     Dates: start: 20101019, end: 20101019
  6. METHYCOBAL [Concomitant]
     Route: 048
     Dates: start: 20101009, end: 20101220
  7. AVASTIN [Suspect]
     Indication: LUNG ADENOCARCINOMA METASTATIC
     Dosage: DOSAGE IS UNCERTAIN.
     Route: 041
     Dates: start: 20101019, end: 20101019
  8. CARBOPLATIN [Suspect]
     Indication: LUNG ADENOCARCINOMA METASTATIC
     Dosage: DOSAGE IS UNCERTAIN
     Route: 041
     Dates: start: 20101019, end: 20101019
  9. RESTAMIN [Concomitant]
     Route: 048
     Dates: start: 20101019, end: 20101019
  10. AVASTIN [Suspect]
     Route: 041
     Dates: start: 20101202, end: 20101202
  11. PACLITAXEL [Suspect]
     Route: 041
     Dates: start: 20101202, end: 20101202
  12. DEPAS [Concomitant]
     Route: 048
     Dates: start: 20101009, end: 20101220
  13. AMOBAN [Concomitant]
     Route: 048
     Dates: start: 20101009, end: 20101220
  14. RESTAMIN [Concomitant]
     Route: 048
     Dates: start: 20101202, end: 20101202

REACTIONS (3)
  - TUMOUR LYSIS SYNDROME [None]
  - DISEASE PROGRESSION [None]
  - ICHTHYOSIS ACQUIRED [None]
